FAERS Safety Report 7647650-7 (Version None)
Quarter: 2011Q3

REPORT INFORMATION
  Report Type: 
  Country: None (occurrence: None)
  Receive Date: 20110801
  Receipt Date: 20110801
  Transmission Date: 20111222
  Serious: Yes (Death, Life-Threatening, Hospitalization)
  Sender: FDA-Public Use
  Company Number: None

PATIENT
  Age: 96 Year
  Sex: Male
  Weight: 74 kg

DRUGS (27)
  1. CALCIUM 500+D [Concomitant]
     Route: 048
  2. MIRALAX [Concomitant]
     Route: 048
  3. SENOKOT [Concomitant]
     Route: 048
  4. VIT D3 [Concomitant]
     Route: 048
  5. AMIODARONE HCL [Suspect]
     Indication: ARRHYTHMIA
     Dosage: 200 MG
     Route: 048
  6. ASPIRIN [Concomitant]
     Route: 048
  7. CLARITIN [Concomitant]
     Route: 048
  8. FAMOTIDINE [Concomitant]
     Route: 048
  9. MAGNESIUM OXIDE [Concomitant]
  10. FLOMAX [Concomitant]
     Route: 048
  11. VIT B12 [Concomitant]
     Route: 048
  12. PRILOSEC [Concomitant]
     Route: 048
  13. COREG [Concomitant]
     Route: 048
  14. TYLENOL-500 [Concomitant]
     Route: 048
  15. BISACODYL [Concomitant]
     Route: 048
  16. AMIODARONE HCL [Concomitant]
     Route: 048
  17. OMEGA-3 POLYUNSATURATED FATTY ACIDS [Concomitant]
     Route: 048
  18. LOVENOX [Concomitant]
     Route: 058
  19. ZOFRAN [Concomitant]
     Route: 048
  20. MYLANTA [Concomitant]
     Route: 048
  21. IMDUR [Concomitant]
     Route: 048
  22. ULTRAM [Concomitant]
     Route: 048
  23. SL NTG [Concomitant]
     Route: 048
  24. ALENDRONATE SODIUM [Concomitant]
     Route: 048
  25. ASCORBIC ACID [Concomitant]
  26. SIMVASTATIN [Concomitant]
     Route: 048
  27. MUCINEX [Concomitant]
     Route: 048

REACTIONS (2)
  - RESPIRATORY FAILURE [None]
  - TOXICITY TO VARIOUS AGENTS [None]
